FAERS Safety Report 8991323 (Version 2)
Quarter: 2013Q1

REPORT INFORMATION
  Report Type: Report from Study
  Country: IL (occurrence: IL)
  Receive Date: 20121230
  Receipt Date: 20130328
  Transmission Date: 20140127
  Serious: Yes (Hospitalization, Other)
  Sender: FDA-Public Use
  Company Number: IL-BRISTOL-MYERS SQUIBB COMPANY-17019795

PATIENT
  Age: 47 Year
  Sex: Female
  Weight: 65 kg

DRUGS (4)
  1. PACLITAXEL [Suspect]
     Indication: OVARIAN CANCER
     Dosage: LAST DOSE: 8DEC11
     Route: 042
     Dates: start: 20110901
  2. CARBOPLATIN [Suspect]
     Indication: OVARIAN CANCER
     Dosage: LAST DOSE: 8DEC11
     Route: 042
     Dates: start: 20110901
  3. BEVACIZUMAB [Suspect]
     Indication: OVARIAN CANCER
     Dosage: LAST DOSE: 12JUL12
     Route: 042
     Dates: start: 20110901
  4. GLUCOPHAGE [Concomitant]

REACTIONS (3)
  - Headache [Recovered/Resolved with Sequelae]
  - Abdominal pain upper [Recovered/Resolved]
  - Chest pain [Recovered/Resolved]
